FAERS Safety Report 12538272 (Version 2)
Quarter: 2016Q3

REPORT INFORMATION
  Report Type: Spontaneous
  Country: DE (occurrence: DE)
  Receive Date: 20160707
  Receipt Date: 20160715
  Transmission Date: 20161109
  Serious: Yes (Hospitalization, Other)
  Sender: FDA-Public Use
  Company Number: DE-BAUSCH-BL-2016-016120

PATIENT
  Age: 77 Year
  Sex: Female

DRUGS (5)
  1. DEXAMETHASONE. [Suspect]
     Active Substance: DEXAMETHASONE
     Indication: HEADACHE
     Route: 065
     Dates: start: 2014
  2. MANNITOL. [Suspect]
     Active Substance: MANNITOL
     Indication: NAUSEA
     Dates: start: 2014
  3. TEMOZOLOMIDE. [Suspect]
     Active Substance: TEMOZOLOMIDE
     Indication: GLIOBLASTOMA MULTIFORME
     Dosage: KOF; 100 PERCENT
     Route: 065
  4. DEXAMETHASONE. [Suspect]
     Active Substance: DEXAMETHASONE
     Indication: NAUSEA
     Dosage: 2 TIMES IN THE MORNING AND ONCE IN THE AFTERNOON
     Route: 065
     Dates: start: 2014
  5. MANNITOL. [Suspect]
     Active Substance: MANNITOL
     Indication: HEADACHE

REACTIONS (6)
  - Fatigue [Recovering/Resolving]
  - Thrombocytopenia [Unknown]
  - Speech disorder [Unknown]
  - Cytomegalovirus infection [Recovered/Resolved]
  - Disorientation [Recovered/Resolved]
  - Ataxia [Recovering/Resolving]

NARRATIVE: CASE EVENT DATE: 2014
